FAERS Safety Report 4312487-3 (Version None)
Quarter: 2004Q1

REPORT INFORMATION
  Report Type: 
  Country: None (occurrence: None)
  Receive Date: 20040305
  Receipt Date: 20040109
  Transmission Date: 20041129
  Serious: Yes (Hospitalization)
  Sender: FDA-Public Use
  Company Number: JP-BRISTOL-MYERS SQUIBB COMPANY-12480653

PATIENT
  Age: 39 Year
  Sex: Female

DRUGS (6)
  1. GATIFLO [Suspect]
     Indication: ABSCESS
     Route: 048
     Dates: start: 20030730, end: 20030802
  2. CEFZON [Suspect]
     Indication: INFECTION PROPHYLAXIS
     Route: 048
     Dates: start: 20030722, end: 20030730
  3. PEON [Suspect]
     Indication: INFLAMMATION
     Route: 048
     Dates: start: 20030722, end: 20030730
  4. PEON [Suspect]
     Indication: PAIN
     Route: 048
     Dates: start: 20030722, end: 20030730
  5. LOXONIN [Suspect]
     Indication: INFLAMMATION
     Route: 048
     Dates: start: 20030730, end: 20030802
  6. LOXONIN [Suspect]
     Indication: PAIN
     Route: 048
     Dates: start: 20030730, end: 20030802

REACTIONS (2)
  - ANAPHYLACTIC REACTION [None]
  - HEPATITIS ACUTE [None]
